FAERS Safety Report 4364676-X (Version None)
Quarter: 2004Q2

REPORT INFORMATION
  Report Type: 
  Country: None (occurrence: None)
  Receive Date: 20040526
  Receipt Date: 20040128
  Transmission Date: 20050107
  Serious: No
  Sender: FDA-Public Use
  Company Number: US-GLAXOSMITHKLINE-A0495341A

PATIENT
  Sex: Female

DRUGS (10)
  1. FLOLAN [Suspect]
     Dosage: 14.5NG CONTINUOUS
     Route: 042
     Dates: start: 20030101
  2. UNKNOWN MEDICATION [Concomitant]
  3. SYNTHROID [Concomitant]
  4. NEURONTIN [Concomitant]
  5. PREMARIN [Concomitant]
  6. COUMADIN [Concomitant]
  7. NIFEDIPINE [Concomitant]
  8. O2 [Concomitant]
  9. MULTI VIT [Concomitant]
  10. DURAGESIC [Concomitant]

REACTIONS (1)
  - DRUG INEFFECTIVE [None]
